FAERS Safety Report 10872845 (Version 1)
Quarter: 2015Q1

REPORT INFORMATION
  Report Type: Spontaneous
  Country: IE (occurrence: IE)
  Receive Date: 20150227
  Receipt Date: 20150227
  Transmission Date: 20150721
  Serious: Yes (Other)
  Sender: FDA-Public Use
  Company Number: IE-BRISTOL-MYERS SQUIBB COMPANY-BMS-2015-010275

PATIENT
  Age: 80 Year
  Sex: Female

DRUGS (2)
  1. FRUSOL [Concomitant]
     Indication: RENAL IMPAIRMENT
     Route: 065
  2. ELIQUIS [Suspect]
     Active Substance: APIXABAN
     Indication: CEREBROVASCULAR ACCIDENT PROPHYLAXIS
     Dosage: 2.5 MG, UNK
     Route: 048

REACTIONS (2)
  - Transmission of an infectious agent via product [Unknown]
  - Hepatitis acute [Unknown]
